FAERS Safety Report 9026006 (Version 1)
Quarter: 2013Q1

REPORT INFORMATION
  Report Type: Spontaneous
  Country: CL (occurrence: CL)
  Receive Date: 20130122
  Receipt Date: 20130122
  Transmission Date: 20140127
  Serious: Yes (Death)
  Sender: FDA-Public Use
  Company Number: PHHY2013CL003767

PATIENT
  Age: 80 Year
  Sex: Female

DRUGS (3)
  1. ACLASTA [Suspect]
     Indication: OSTEOPOROSIS
     Dosage: 5 MG/100 ML ANNUALLY
     Route: 042
  2. ASPIRIN [Concomitant]
     Indication: CARDIAC DISORDER
     Dosage: UNK, QD
  3. CALCIUM [Concomitant]
     Indication: BONE DISORDER
     Route: 048

REACTIONS (2)
  - Cerebral thrombosis [Fatal]
  - Syncope [Fatal]
